FAERS Safety Report 21399588 (Version 1)
Quarter: 2022Q4

REPORT INFORMATION
  Report Type: Spontaneous
  Country: DE (occurrence: DE)
  Receive Date: 20221001
  Receipt Date: 20221001
  Transmission Date: 20230113
  Serious: Yes (Hospitalization)
  Sender: FDA-Public Use
  Company Number: DE-ADRED-07635-02

PATIENT
  Age: 76 Year
  Sex: Female
  Weight: 53 kg

DRUGS (8)
  1. OCTREOTIDE [Suspect]
     Active Substance: OCTREOTIDE
     Indication: Product used for unknown indication
     Dosage: MONTHLY, DEPOT SUSPENSION FOR INJECTION
  2. PANCRELIPASE [Concomitant]
     Active Substance: PANCRELIPASE
     Indication: Product used for unknown indication
     Dosage: 3 DOSAGE FORMS DAILY; 25000 IU, 1-1-1-0, KREON 25000, UNIT DOSE : 1 DF , FREQUENCY : 3 TIMES A DAY
  3. PANTOPRAZOLE [Concomitant]
     Active Substance: PANTOPRAZOLE
     Indication: Product used for unknown indication
     Dosage: 1 DOSAGE FORMS DAILY; 40 MG, 1-0-0-0, UNIT DOSE : 1 DF , FREQUENCY : OD
  4. RISPERIDONE [Concomitant]
     Active Substance: RISPERIDONE
     Indication: Product used for unknown indication
     Dosage: 1 DOSAGE FORMS DAILY; 1 MG, 1-0-0-0, UNIT DOSE : 1 DF , FREQUENCY : OD
  5. THIAMINE HYDROCHLORIDE [Concomitant]
     Active Substance: THIAMINE HYDROCHLORIDE
     Indication: Product used for unknown indication
     Dosage: .5 DOSAGE FORMS DAILY; 200 MG, 0-0.5-0-0, UNIT DOSE : 0.5 DF , FREQUENCY : OD, STRENGTH : 200 MG
  6. DOXYCYCLINE [Concomitant]
     Active Substance: DOXYCYCLINE
     Indication: Product used for unknown indication
     Dosage: 1 DOSAGE FORMS DAILY; 100 MG, 1-0-0-0, UNIT DOSE : 1 DF , FREQUENCY : OD
  7. SERTRALINE [Concomitant]
     Active Substance: SERTRALINE HYDROCHLORIDE
     Indication: Product used for unknown indication
     Dosage: 1 DOSAGE FORMS DAILY; 100 MG, 1-0-0-0, UNIT DOSE : 1 DF , FREQUENCY : OD
  8. RAMIPRIL [Concomitant]
     Active Substance: RAMIPRIL
     Indication: Product used for unknown indication
     Dosage: 2 DOSAGE FORMS DAILY; 2.5 MG, 1-0-1-0, UNIT DOSE : 1 DF , FREQUENCY : OD

REACTIONS (5)
  - Chills [Unknown]
  - Fatigue [Unknown]
  - Pyrexia [Unknown]
  - Nausea [Unknown]
  - Cholangitis [Unknown]
